FAERS Safety Report 9674864 (Version 1)
Quarter: 2013Q4

REPORT INFORMATION
  Report Type: Spontaneous
  Country: US (occurrence: None)
  Receive Date: 20131106
  Receipt Date: 20131106
  Transmission Date: 20140711
  Serious: No
  Sender: FDA-Public Use
  Company Number: None

PATIENT
  Age: 46 Year
  Sex: Female
  Weight: 61.9 kg

DRUGS (2)
  1. ONDANSETRON [Suspect]
     Indication: COLONOSCOPY
     Dates: start: 20131030
  2. SODIUM CHLORIDE [Suspect]
     Indication: COLONOSCOPY
     Dosage: 10 ML SYRINGE?
     Route: 042
     Dates: start: 20131030

REACTIONS (3)
  - Injection site erythema [None]
  - Injection site pruritus [None]
  - Urticaria [None]
